FAERS Safety Report 7429892-9 (Version None)
Quarter: 2011Q2

REPORT INFORMATION
  Report Type: 
  Country: None (occurrence: None)
  Receive Date: 20110419
  Receipt Date: 20110419
  Transmission Date: 20111010
  Serious: Yes (Hospitalization)
  Sender: FDA-Public Use
  Company Number: None

PATIENT
  Sex: Female
  Weight: 80.24 kg

DRUGS (8)
  1. OMEPRAZOLE [Concomitant]
  2. EFFIENT [Suspect]
     Indication: STENT PLACEMENT
     Dosage: 10MG DAILY PO
     Route: 048
     Dates: start: 20110406, end: 20110415
  3. ASPIRIN [Concomitant]
  4. ATORVASTATIN [Concomitant]
  5. FENOFIBRATE [Concomitant]
  6. METOPROLOL TARTRATE [Concomitant]
  7. HYDROCHLOROTHIAZIDE [Concomitant]
  8. PREDNISONE [Concomitant]

REACTIONS (4)
  - HYPERHIDROSIS [None]
  - ABDOMINAL PAIN [None]
  - DYSPNOEA [None]
  - PLATELET COUNT DECREASED [None]
